FAERS Safety Report 17787661 (Version 2)
Quarter: 2020Q2

REPORT INFORMATION
  Report Type: Spontaneous
  Country: US (occurrence: US)
  Receive Date: 20200515
  Receipt Date: 20200608
  Transmission Date: 20200714
  Serious: No
  Sender: FDA-Public Use
  Company Number: US-GLAXOSMITHKLINE-US2020077623

PATIENT
  Sex: Male

DRUGS (5)
  1. ALLI [Suspect]
     Active Substance: ORLISTAT
     Dosage: UNK  (4 CAPSULES A DAY)
  2. ALLI [Suspect]
     Active Substance: ORLISTAT
     Indication: WEIGHT LOSS DIET
     Dosage: 4 UNK (4 CAPSULES A DAY)
  3. ALLI [Suspect]
     Active Substance: ORLISTAT
     Dosage: UNK (4 CAPSULES A DAY)
  4. ALLI [Suspect]
     Active Substance: ORLISTAT
     Dosage: UNK (4 CAPSULES A DAY)
  5. ALLI [Suspect]
     Active Substance: ORLISTAT
     Dosage: UNK (4 CAPSULES A DAY)

REACTIONS (5)
  - Treatment noncompliance [Unknown]
  - Overdose [Unknown]
  - Weight increased [Unknown]
  - Extra dose administered [Unknown]
  - Drug ineffective [Unknown]
